FAERS Safety Report 13560260 (Version 1)
Quarter: 2017Q2

REPORT INFORMATION
  Report Type: Spontaneous
  Country: GB (occurrence: GB)
  Receive Date: 20170518
  Receipt Date: 20170518
  Transmission Date: 20170830
  Serious: Yes (Hospitalization)
  Sender: FDA-Public Use
  Company Number: GB-PFIZER INC-2017212291

PATIENT
  Age: 40 Year
  Sex: Male

DRUGS (5)
  1. VARENICLINE TARTRATE [Suspect]
     Active Substance: VARENICLINE TARTRATE
     Indication: SMOKING CESSATION THERAPY
     Dosage: 1 MG, 2X/DAY
     Route: 048
     Dates: start: 201701
  2. HALOPERIDOL DECANOATE. [Concomitant]
     Active Substance: HALOPERIDOL DECANOATE
  3. ATENOLOL. [Concomitant]
     Active Substance: ATENOLOL
  4. SENNA /00142201/ [Concomitant]
     Active Substance: SENNA LEAF
  5. RISPERIDONE. [Concomitant]
     Active Substance: RISPERIDONE

REACTIONS (5)
  - Schizophrenia [Recovering/Resolving]
  - Hallucination, auditory [Unknown]
  - Sexually inappropriate behaviour [Unknown]
  - Delusion [Unknown]
  - Mental impairment [Unknown]

NARRATIVE: CASE EVENT DATE: 201704
